FAERS Safety Report 6224013-2 (Version None)
Quarter: 2009Q2

REPORT INFORMATION
  Report Type: 
  Country: None (occurrence: None)
  Receive Date: 20090612
  Receipt Date: 20090305
  Transmission Date: 20091009
  Serious: No
  Sender: FDA-Public Use
  Company Number: US-ABBOTT-09P-163-0561213-00

PATIENT
  Sex: Female

DRUGS (5)
  1. HUMIRA [Suspect]
     Indication: COLITIS ULCERATIVE
     Route: 058
     Dates: start: 20080301
  2. ASACOL [Concomitant]
     Indication: COLITIS
     Dosage: 6 TABS A DAY
  3. ULTRAM [Concomitant]
     Indication: FIBROMYALGIA
     Route: 048
  4. AMBIEN [Concomitant]
     Indication: INSOMNIA
     Route: 048
  5. PROVENTIL-HFA [Concomitant]
     Indication: BRONCHITIS
     Route: 055
     Dates: start: 20080901

REACTIONS (3)
  - BRONCHITIS [None]
  - INJECTION SITE HAEMATOMA [None]
  - INJECTION SITE PAIN [None]
